FAERS Safety Report 6556650-X (Version None)
Quarter: 2010Q1

REPORT INFORMATION
  Report Type: 
  Country: None (occurrence: None)
  Receive Date: 20100128
  Receipt Date: 20100118
  Transmission Date: 20100710
  Serious: Yes (Hospitalization, Other)
  Sender: FDA-Public Use
  Company Number: BR-ABBOTT-09P-020-0597276-00

PATIENT
  Sex: Female
  Weight: 81 kg

DRUGS (5)
  1. HUMIRA [Suspect]
     Indication: RHEUMATOID ARTHRITIS
     Route: 058
     Dates: start: 20090701
  2. PREDNISONE [Concomitant]
     Indication: RHEUMATOID ARTHRITIS
     Route: 048
     Dates: start: 20090501
  3. NORFLOXACIN [Concomitant]
     Indication: RHEUMATOID ARTHRITIS
     Route: 048
     Dates: start: 20090601
  4. METHOTREXATE [Concomitant]
     Indication: RHEUMATOID ARTHRITIS
     Route: 048
     Dates: start: 20090601
  5. FLUOXETINE [Concomitant]
     Indication: DEPRESSION
     Route: 048
     Dates: start: 20090601

REACTIONS (11)
  - ARTHRITIS [None]
  - CYSTITIS [None]
  - HYPERHIDROSIS [None]
  - IMMUNODEFICIENCY [None]
  - INFLUENZA [None]
  - MOBILITY DECREASED [None]
  - NEPHROLITHIASIS [None]
  - RENAL COLIC [None]
  - RENAL PAIN [None]
  - THROAT IRRITATION [None]
  - VOMITING [None]
